FAERS Safety Report 25942239 (Version 1)
Quarter: 2025Q4

REPORT INFORMATION
  Report Type: Spontaneous
  Country: US (occurrence: US)
  Receive Date: 20251020
  Receipt Date: 20251020
  Transmission Date: 20260117
  Serious: No
  Sender: AMGEN
  Company Number: US-AMGEN-USASP2025204322

PATIENT

DRUGS (2)
  1. REPATHA [Suspect]
     Active Substance: EVOLOCUMAB
     Indication: Blood cholesterol increased
     Dosage: UNK
     Route: 065
  2. INFLUENZA VIRUS VACCINE [Concomitant]
     Active Substance: INFLUENZA VIRUS VACCINE

REACTIONS (9)
  - Oropharyngeal pain [Unknown]
  - Rhinorrhoea [Unknown]
  - Back pain [Recovering/Resolving]
  - Pain in extremity [Unknown]
  - Cough [Recovering/Resolving]
  - Chronic fatigue syndrome [Unknown]
  - Chest discomfort [Unknown]
  - Pollakiuria [Recovering/Resolving]
  - Arthralgia [Unknown]
